FAERS Safety Report 20472762 (Version 1)
Quarter: 2022Q1

REPORT INFORMATION
  Report Type: Spontaneous
  Country: GB (occurrence: GB)
  Receive Date: 20220215
  Receipt Date: 20220215
  Transmission Date: 20220423
  Serious: Yes (Other)
  Sender: FDA-Public Use
  Company Number: None

PATIENT
  Age: 80 Year
  Sex: Female
  Weight: 90 kg

DRUGS (16)
  1. OMEPRAZOLE [Suspect]
     Active Substance: OMEPRAZOLE
     Dosage: ONE CAPSULE TO BE TAKEN ONCE A DAY
     Route: 050
     Dates: start: 20210521, end: 20220121
  2. ACYCLOVIR [Concomitant]
     Active Substance: ACYCLOVIR
     Dosage: 2 SEPARATED DOSES
     Dates: start: 20211105, end: 20211115
  3. ADCAL [Concomitant]
     Dosage: 2 SEPARATED DOSES
     Dates: start: 20210521
  4. ALENDRONIC ACID [Concomitant]
     Active Substance: ALENDRONIC ACID
     Dosage: ONE TABLET TO BE TAKEN WEEKLY FOR OSTEOPOROSIS....
     Dates: start: 20210521
  5. ATORVASTATIN [Concomitant]
     Active Substance: ATORVASTATIN
     Indication: Blood cholesterol increased
     Dates: start: 20210514, end: 20211105
  6. CANDESARTAN [Concomitant]
     Active Substance: CANDESARTAN
     Dates: start: 20210514
  7. CETRABEN EMOLLIENT CREAM [Concomitant]
     Dosage: USE AS DIRECTED
     Dates: start: 20220106
  8. CITALOPRAM [Concomitant]
     Active Substance: CITALOPRAM HYDROBROMIDE
     Dates: start: 20210514
  9. FAMOTIDINE [Concomitant]
     Active Substance: FAMOTIDINE
     Dates: start: 20220121
  10. FLUCLOXACILLIN [Concomitant]
     Active Substance: FLUCLOXACILLIN
     Dosage: 4 SEPARATED DOSES
     Dates: start: 20211201, end: 20211208
  11. BETAMETHASONE VALERATE\FUSIDIC ACID [Concomitant]
     Active Substance: BETAMETHASONE VALERATE\FUSIDIC ACID
     Dosage: TO BE APPLIED SPARINGLY TO THE AFFECTED AREA(S)...
     Dates: start: 20211119, end: 20211217
  12. FUROSEMIDE [Concomitant]
     Active Substance: FUROSEMIDE
     Dosage: TAKE ONE EACH MORNING; THIS REPLACES BENDROFLUM...
     Dates: start: 20210514
  13. FUSIDIC ACID [Concomitant]
     Active Substance: FUSIDIC ACID
     Dosage: 2 SEPARATED DOSES
     Dates: start: 20211201, end: 20211208
  14. LEVOTHYROXINE [Concomitant]
     Active Substance: LEVOTHYROXINE
     Dosage: MORNING
     Dates: start: 20210514
  15. PREDNISOLONE [Concomitant]
     Active Substance: PREDNISOLONE
     Dosage: TAKE AS DIRECTED
     Dates: start: 20210521
  16. TRIMETHOPRIM [Concomitant]
     Active Substance: TRIMETHOPRIM
     Dosage: TAKE ONE TWICE DAILY FOR 3 DAYS, TO TREAT URINE...
     Dates: start: 20220106, end: 20220109

REACTIONS (1)
  - Colitis [Recovering/Resolving]

NARRATIVE: CASE EVENT DATE: 20211201
